FAERS Safety Report 7509129-2 (Version None)
Quarter: 2011Q2

REPORT INFORMATION
  Report Type: 
  Country: None (occurrence: None)
  Receive Date: 20110527
  Receipt Date: 20110516
  Transmission Date: 20111010
  Serious: Yes (Hospitalization, Other)
  Sender: FDA-Public Use
  Company Number: US-PFIZER INC-2011110051

PATIENT
  Age: 26 Year
  Sex: Male

DRUGS (3)
  1. PEGINTERFERON ALFA-2B [Suspect]
     Indication: HEPATITIS C
     Dosage: 1.5 MCG/KG, WEEKLY
  2. SERTRALINE HYDROCHLORIDE [Suspect]
     Indication: DEPRESSION
     Dosage: 50 MG/DAY
  3. RIBAVIRIN [Suspect]
     Indication: HEPATITIS C
     Dosage: UNK

REACTIONS (3)
  - CONVULSION [None]
  - DYSPNOEA [None]
  - FOAMING AT MOUTH [None]
